FAERS Safety Report 6504309-7 (Version None)
Quarter: 2009Q4

REPORT INFORMATION
  Report Type: 
  Country: None (occurrence: None)
  Receive Date: 20091217
  Receipt Date: 20091215
  Transmission Date: 20100525
  Serious: Yes (Life-Threatening, Hospitalization)
  Sender: FDA-Public Use
  Company Number: FR-WYE-G05147209

PATIENT
  Sex: Female

DRUGS (3)
  1. ADVIL [Suspect]
     Indication: ABDOMINAL PAIN UPPER
     Dosage: 1200 MG TOTAL DAILY
     Route: 048
     Dates: start: 20090912, end: 20090916
  2. HERBAL PREPARATION [Suspect]
     Indication: ANXIETY
     Dosage: UNKNOWN
     Route: 048
     Dates: start: 20090901, end: 20090915
  3. ASPIRIN [Suspect]
     Indication: ABDOMINAL PAIN UPPER
     Dosage: 2 G TOTAL DAILY
     Route: 048
     Dates: start: 20090915, end: 20090916

REACTIONS (8)
  - ANTINUCLEAR ANTIBODY POSITIVE [None]
  - ASCITES [None]
  - C-REACTIVE PROTEIN INCREASED [None]
  - CYTOLYTIC HEPATITIS [None]
  - HEPATIC CIRRHOSIS [None]
  - IMMUNOGLOBULINS INCREASED [None]
  - PLATELET COUNT DECREASED [None]
  - URINARY TRACT INFECTION BACTERIAL [None]
